FAERS Safety Report 9582109 (Version 1)
Quarter: 2013Q4

REPORT INFORMATION
  Report Type: Spontaneous
  Country: US (occurrence: US)
  Receive Date: 20131002
  Receipt Date: 20131002
  Transmission Date: 20140711
  Serious: No
  Sender: FDA-Public Use
  Company Number: US-AMGEN-USASP2013043703

PATIENT
  Age: 54 Year
  Sex: Female
  Weight: 63.95 kg

DRUGS (11)
  1. ENBREL [Suspect]
     Indication: PRODUCT USED FOR UNKNOWN INDICATION
     Dosage: 50 MG, QWK
     Route: 058
  2. LORTAB                             /00607101/ [Concomitant]
     Dosage: UNK MG, UNK, 10-500MG
  3. CARISOPRODOL [Concomitant]
     Dosage: 250 MG, UNK
  4. GABAPENTIN [Concomitant]
     Dosage: 300 MG, UNK
  5. VISTARIL                           /00058402/ [Concomitant]
     Dosage: 25 MG, UNK
  6. ALENDRONATE [Concomitant]
     Dosage: 10 MG, UNK
  7. PROPANTHELINE [Concomitant]
     Dosage: 15 MG, UNK
  8. PLAQUENIL                          /00072602/ [Concomitant]
     Dosage: 200 MG, UNK
  9. ALBUTEROL                          /00139502/ [Concomitant]
     Dosage: 90 MUG, UNK
  10. CALCIUM +D                         /00944201/ [Concomitant]
     Dosage: UNK
  11. CALCIUM [Concomitant]
     Dosage: 500 UNK, UNK

REACTIONS (1)
  - Gastroenteritis viral [Unknown]
